FAERS Safety Report 7478062-7 (Version None)
Quarter: 2011Q2

REPORT INFORMATION
  Report Type: 
  Country: None (occurrence: None)
  Receive Date: 20110513
  Receipt Date: 20110509
  Transmission Date: 20111010
  Serious: Yes (Other)
  Sender: FDA-Public Use
  Company Number: FR-SANOFI-AVENTIS-2011SA029175

PATIENT
  Age: 64 Year
  Sex: Male

DRUGS (2)
  1. PREVISCAN [Interacting]
     Dosage: 10 MG FOR 2 DAY THEN 15 MG THE 3RD DAY
     Route: 048
     Dates: start: 19980101
  2. MULTAQ [Suspect]
     Route: 048
     Dates: start: 20110118

REACTIONS (2)
  - DRUG INTERACTION [None]
  - INTERNATIONAL NORMALISED RATIO DECREASED [None]
